FAERS Safety Report 7979990-6 (Version None)
Quarter: 2011Q4

REPORT INFORMATION
  Report Type: 
  Country: None (occurrence: None)
  Receive Date: 20111208
  Receipt Date: 20111205
  Transmission Date: 20120403
  Serious: Yes (Life-Threatening, Other)
  Sender: FDA-Public Use
  Company Number: 2011SP048465

PATIENT
  Age: 63 Year
  Sex: Male
  Weight: 86 kg

DRUGS (17)
  1. VIRAFERONPEG [Suspect]
     Indication: HEPATITIS C
     Dosage: 120 MCG;QW;SC, 100 MCG;QW;SC
     Route: 058
     Dates: start: 20110330
  2. VIRAFERONPEG [Suspect]
     Indication: HEPATITIS C
     Dosage: 120 MCG;QW;SC, 100 MCG;QW;SC
     Route: 058
     Dates: start: 20110915
  3. CORGARD [Concomitant]
  4. COPEGUS [Suspect]
     Indication: HEPATITIS C
     Dosage: 400 MG;TID, 200 MG;BID
     Dates: start: 20110811
  5. COPEGUS [Suspect]
     Indication: HEPATITIS C
     Dosage: 400 MG;TID, 200 MG;BID
     Dates: start: 20110330
  6. NEORECORMON [Concomitant]
  7. COPEGUS [Concomitant]
  8. TOPLEXIL [Concomitant]
  9. COPEGUS [Concomitant]
  10. VICTRELIS [Suspect]
     Indication: HEPATITIS C
     Dosage: 4 DF;TID
     Route: 067
     Dates: start: 20110509
  11. LANSOPRAZOLE [Concomitant]
  12. MICONAZOLE [Concomitant]
  13. PEGASYS [Concomitant]
  14. LANTUS [Concomitant]
  15. MICONAZOLE [Concomitant]
  16. PEGASYS [Concomitant]
  17. SPECIAFOLDINE [Concomitant]

REACTIONS (7)
  - HEPATIC LESION [None]
  - DIFFUSE LARGE B-CELL LYMPHOMA [None]
  - ANAEMIA [None]
  - HEPATIC NEOPLASM MALIGNANT [None]
  - THROMBOCYTOPENIA [None]
  - HERNIA [None]
  - HEPATIC NEOPLASM [None]
